FAERS Safety Report 16388866 (Version 1)
Quarter: 2019Q2

REPORT INFORMATION
  Report Type: Spontaneous
  Country: ES (occurrence: ES)
  Receive Date: 20190604
  Receipt Date: 20190604
  Transmission Date: 20190711
  Serious: Yes (Other)
  Sender: FDA-Public Use
  Company Number: ES-ASTRAZENECA-2019SE82580

PATIENT
  Age: 23 Month
  Sex: Female
  Weight: 11.9 kg

DRUGS (1)
  1. OMEPRAZOL [Suspect]
     Active Substance: OMEPRAZOLE
     Indication: GASTROOESOPHAGEAL REFLUX DISEASE
     Dosage: SUSPENSION
     Route: 048
     Dates: start: 20170707, end: 20190515

REACTIONS (1)
  - Hypertrichosis [Unknown]

NARRATIVE: CASE EVENT DATE: 20190422
